FAERS Safety Report 9863255 (Version 2)
Quarter: 2014Q1

REPORT INFORMATION
  Report Type: Spontaneous
  Country: US (occurrence: US)
  Receive Date: 20140203
  Receipt Date: 20140203
  Transmission Date: 20141002
  Serious: No
  Sender: FDA-Public Use
  Company Number: US-TARO-2013P1006201

PATIENT
  Age: 81 Year
  Sex: Female

DRUGS (3)
  1. NYSTATIN + TRIAMCINOLONE ACETONIDE CREAM USP [Suspect]
     Route: 067
     Dates: start: 201304, end: 201304
  2. NYSTATIN + TRIAMCINOLONE ACETONIDE CREAM USP [Suspect]
     Route: 067
     Dates: start: 201304, end: 201304
  3. UNSPECIFIED ESTROGEN VAGINAL CREAM [Concomitant]

REACTIONS (3)
  - Pruritus [Recovered/Resolved]
  - Acne [Recovered/Resolved]
  - Drug ineffective [Unknown]
